FAERS Safety Report 6017817-2 (Version None)
Quarter: 2008Q4

REPORT INFORMATION
  Report Type: 
  Country: None (occurrence: None)
  Receive Date: 20081223
  Receipt Date: 20081210
  Transmission Date: 20090506
  Serious: Yes (Life-Threatening, Hospitalization, Other)
  Sender: FDA-Public Use
  Company Number: CA-ROCHE-600182

PATIENT
  Sex: Female
  Weight: 70 kg

DRUGS (18)
  1. PEG-INTERFERON ALFA 2A (RO 25-8310) [Suspect]
     Route: 058
     Dates: start: 20081106
  2. RIBAVIRIN [Suspect]
     Route: 048
     Dates: start: 20081106
  3. SEROQUEL [Suspect]
     Indication: BIPOLAR DISORDER
     Dosage: REPORTED AS SEROQUIL.
     Route: 065
     Dates: start: 20030101, end: 20031113
  4. DILANTIN [Concomitant]
     Indication: EPILEPSY
     Route: 048
     Dates: start: 19680101
  5. EPIVAL [Concomitant]
     Indication: EPILEPSY
     Route: 048
     Dates: start: 19800101
  6. CLONAZEPAM [Concomitant]
     Indication: BIPOLAR DISORDER
     Dates: start: 20030101, end: 20031113
  7. TYLENOL (CAPLET) [Concomitant]
     Indication: HEADACHE
     Dates: start: 19680101
  8. TYLENOL (CAPLET) [Concomitant]
     Dosage: GIVEN FOR FLU-LIKE SYMPTOMS.
     Dates: start: 20071106
  9. EPO [Concomitant]
     Dates: start: 20080204, end: 20080930
  10. NEUPOGEN [Concomitant]
     Indication: NEUTROPENIA
     Dates: start: 20080528, end: 20080926
  11. LACTULOSE [Concomitant]
     Route: 048
     Dates: start: 20081114
  12. ALDACTONE [Concomitant]
     Route: 048
     Dates: start: 20081115
  13. MULTIVITE [Concomitant]
     Route: 048
     Dates: start: 20081115
  14. SLOW-K [Concomitant]
     Route: 048
     Dates: start: 20081116
  15. LASIX [Concomitant]
     Route: 048
     Dates: start: 20081101
  16. ALBUMIN 25% [Concomitant]
     Dates: start: 20081119, end: 20081119
  17. ALBUMIN 25% [Concomitant]
     Dates: start: 20081119, end: 20081119
  18. ALBUMIN 25% [Concomitant]
     Dates: start: 20081120, end: 20081120

REACTIONS (4)
  - ASCITES [None]
  - HEPATIC CIRRHOSIS [None]
  - PORTAL HYPERTENSION [None]
  - VARICES OESOPHAGEAL [None]
